FAERS Safety Report 6427530-5 (Version None)
Quarter: 2009Q4

REPORT INFORMATION
  Report Type: 
  Country: None (occurrence: None)
  Receive Date: 20091030
  Receipt Date: 20091021
  Transmission Date: 20100525
  Serious: Yes (Hospitalization)
  Sender: FDA-Public Use
  Company Number: INDT-PR-0910S-0004

PATIENT
  Age: 75 Year
  Sex: Male

DRUGS (7)
  1. INDIUM- 111 DTPA INJ [Suspect]
     Indication: NORMAL PRESSURE HYDROCEPHALUS
     Dosage: 27.75 MBQ, SINGLE DOSE, I.T.
     Route: 038
     Dates: start: 20091013, end: 20091013
  2. METFORMIN HCL [Concomitant]
  3. HYDROCHLOROTHIAZIDE [Concomitant]
  4. TAMULOSIN HCL (FLOMAX) [Concomitant]
  5. METOPROLOL [Concomitant]
  6. ASPIRIN [Concomitant]
  7. ATORVASTATION (LIPITOR) [Concomitant]

REACTIONS (12)
  - BACTERIAL TEST [None]
  - BLOOD URINE PRESENT [None]
  - CSF POLYMORPHONUCLEAR CELL COUNT INCREASED [None]
  - DISORIENTATION [None]
  - INFECTION [None]
  - LEUKOCYTOSIS [None]
  - MENTAL STATUS CHANGES [None]
  - PYREXIA [None]
  - SPEECH DISORDER [None]
  - UNRESPONSIVE TO STIMULI [None]
  - URINE LEUKOCYTE ESTERASE POSITIVE [None]
  - WHITE BLOOD CELLS URINE POSITIVE [None]
